FAERS Safety Report 10154885 (Version 2)
Quarter: 2014Q2

REPORT INFORMATION
  Report Type: Spontaneous
  Country: US (occurrence: US)
  Receive Date: 20140506
  Receipt Date: 20140506
  Transmission Date: 20141212
  Serious: Yes (Other)
  Sender: FDA-Public Use
  Company Number: US-SHIRE-ALL1-2013-03567

PATIENT
  Sex: Female
  Weight: 61.22 kg

DRUGS (3)
  1. VYVANSE [Suspect]
     Indication: ATTENTION DEFICIT/HYPERACTIVITY DISORDER
     Dosage: 40 MG, 1X/DAY:QD
     Route: 048
     Dates: end: 201306
  2. VYVANSE [Suspect]
     Dosage: UNK UNK, UNKNOWN (TOOK A FEW TIMES AT END OF PREGNANCY)
     Route: 048
  3. CYTOTEC [Concomitant]
     Indication: ABORTION
     Dosage: 3 DF, UNKNOWN
     Route: 065
     Dates: start: 201306, end: 201306

REACTIONS (6)
  - Depression [Recovered/Resolved]
  - Induced abortion failed [Recovered/Resolved]
  - Vaginal haemorrhage [Recovered/Resolved]
  - Weight increased [Unknown]
  - Exposure during pregnancy [Recovered/Resolved]
  - Diarrhoea [Recovered/Resolved]
